FAERS Safety Report 13472557 (Version 1)
Quarter: 2017Q2

REPORT INFORMATION
  Report Type: Spontaneous
  Country: US (occurrence: US)
  Receive Date: 20170423
  Receipt Date: 20170423
  Transmission Date: 20170830
  Serious: Yes (Disabling)
  Sender: FDA-Public Use
  Company Number: None

PATIENT
  Age: 31 Year
  Sex: Female
  Weight: 66.15 kg

DRUGS (1)
  1. LEVOFLOXACIN. [Suspect]
     Active Substance: LEVOFLOXACIN
     Indication: SINUSITIS
     Dosage: ?          QUANTITY:10 TABLET(S);?
     Route: 048
     Dates: start: 20170321, end: 20170327

REACTIONS (13)
  - Tendonitis [None]
  - Tinnitus [None]
  - Visual impairment [None]
  - Hypoaesthesia [None]
  - Muscular weakness [None]
  - Pain in extremity [None]
  - Arthralgia [None]
  - Musculoskeletal pain [None]
  - Paraesthesia [None]
  - Neck pain [None]
  - Burning sensation [None]
  - Neuralgia [None]
  - Muscle twitching [None]

NARRATIVE: CASE EVENT DATE: 20170327
